FAERS Safety Report 19480390 (Version 1)
Quarter: 2021Q2

REPORT INFORMATION
  Report Type: Spontaneous
  Country: US (occurrence: US)
  Receive Date: 20210630
  Receipt Date: 20210630
  Transmission Date: 20210717
  Serious: Yes (Other)
  Sender: FDA-Public Use
  Company Number: US-FOUNDATIONCONSUMERHC-2021-US-004379

PATIENT
  Age: 26 Year
  Sex: Female
  Weight: 86.18 kg

DRUGS (1)
  1. PLAN B ONE?STEP [Suspect]
     Active Substance: LEVONORGESTREL
     Indication: POST COITAL CONTRACEPTION
     Dosage: 1.5MG AS A SINGLE DOSE X4
     Route: 048
     Dates: start: 2018, end: 20210209

REACTIONS (6)
  - Pregnancy after post coital contraception [Unknown]
  - Vomiting [Recovered/Resolved]
  - Drug ineffective [Unknown]
  - Diarrhoea [Recovered/Resolved]
  - Nausea [Recovered/Resolved]
  - Vaginal haemorrhage [Recovered/Resolved]

NARRATIVE: CASE EVENT DATE: 2018
